FAERS Safety Report 17354555 (Version 3)
Quarter: 2024Q1

REPORT INFORMATION
  Report Type: Spontaneous
  Country: FI (occurrence: None)
  Receive Date: 20200131
  Receipt Date: 20240329
  Transmission Date: 20240409
  Serious: Yes (Hospitalization, Other)
  Sender: FDA-Public Use
  Company Number: 2020SE11909

PATIENT
  Age: 58 Year
  Sex: Male

DRUGS (8)
  1. QUETIAPINE [Interacting]
     Active Substance: QUETIAPINE
     Indication: Bipolar disorder
     Dosage: 400 MG, QD
  2. VALPROIC ACID [Interacting]
     Active Substance: VALPROIC ACID
     Indication: Bipolar disorder
     Dosage: 1800 MG, QD
     Route: 065
  3. OXALIPLATIN [Interacting]
     Active Substance: OXALIPLATIN
     Indication: Adjuvant therapy
     Route: 065
  4. OXALIPLATIN [Interacting]
     Active Substance: OXALIPLATIN
     Indication: Metastases to lymph nodes
     Route: 065
  5. OXALIPLATIN [Interacting]
     Active Substance: OXALIPLATIN
     Indication: Rectal cancer metastatic
     Route: 065
  6. CAPECITABINE [Interacting]
     Active Substance: CAPECITABINE
     Indication: Rectal cancer metastatic
  7. CAPECITABINE [Interacting]
     Active Substance: CAPECITABINE
     Indication: Metastases to lymph nodes
  8. CAPECITABINE [Interacting]
     Active Substance: CAPECITABINE
     Indication: Adjuvant therapy

REACTIONS (8)
  - Diplopia [Recovered/Resolved]
  - Fatigue [Recovered/Resolved]
  - Dysarthria [Recovered/Resolved]
  - Balance disorder [Recovered/Resolved]
  - Toxicity to various agents [Recovered/Resolved]
  - Tremor [Recovered/Resolved]
  - Blood albumin decreased [Unknown]
  - Drug interaction [Unknown]
